FAERS Safety Report 8210543-0 (Version None)
Quarter: 2012Q1

REPORT INFORMATION
  Report Type: 
  Country: None (occurrence: None)
  Receive Date: 20120314
  Receipt Date: 20111215
  Transmission Date: 20120608
  Serious: No
  Sender: FDA-Public Use
  Company Number: US-ASTRAZENECA-2011SE76206

PATIENT
  Sex: Female
  Weight: 56.2 kg

DRUGS (2)
  1. TOPROL-XL [Suspect]
     Route: 048
  2. TOPROL-XL [Suspect]
     Route: 048

REACTIONS (11)
  - MYALGIA [None]
  - HYPOAESTHESIA [None]
  - COORDINATION ABNORMAL [None]
  - PARAESTHESIA [None]
  - NAUSEA [None]
  - WEIGHT DECREASED [None]
  - MALAISE [None]
  - DISSOCIATION [None]
  - MUSCLE TWITCHING [None]
  - HEADACHE [None]
  - MIGRAINE [None]
